FAERS Safety Report 5796395-7 (Version None)
Quarter: 2008Q2

REPORT INFORMATION
  Report Type: 
  Country: None (occurrence: None)
  Receive Date: 20080630
  Receipt Date: 20080630
  Transmission Date: 20081010
  Serious: Yes (Hospitalization)
  Sender: FDA-Public Use
  Company Number: None

PATIENT
  Age: 54 Year
  Sex: Female
  Weight: 70 kg

DRUGS (2)
  1. DOCETAXEL [Suspect]
     Indication: BREAST CANCER
     Dates: start: 20080411, end: 20080420
  2. TRASTUZUMAB [Suspect]
     Indication: BREAST CANCER
     Dates: start: 20080411, end: 20080420

REACTIONS (16)
  - ABSCESS [None]
  - CHEILITIS [None]
  - CHEST DISCOMFORT [None]
  - COUGH [None]
  - DIARRHOEA [None]
  - HYPOTENSION [None]
  - HYPOXIA [None]
  - LUNG INFILTRATION [None]
  - MUCOSAL INFLAMMATION [None]
  - NO THERAPEUTIC RESPONSE [None]
  - PNEUMOTHORAX [None]
  - PULMONARY EMBOLISM [None]
  - PYREXIA [None]
  - RESPIRATORY FAILURE [None]
  - WEIGHT DECREASED [None]
  - WHITE BLOOD CELL COUNT INCREASED [None]
